FAERS Safety Report 8746683 (Version 3)
Quarter: 2012Q4

REPORT INFORMATION
  Report Type: 
  Country: US (occurrence: US)
  Receive Date: 20120827
  Receipt Date: 20121226
  Transmission Date: 20130627
  Serious: Yes (Other)
  Sender: FDA-Public Use
  Company Number: US-PFIZER INC-2012207912

PATIENT
  Age: 51 Year

DRUGS (1)
  1. NORVASC [Suspect]
     Dosage: 10 mg, 1x/day

REACTIONS (2)
  - Hepatitis C [Unknown]
  - Hypertension [Unknown]
